FAERS Safety Report 9405998 (Version 2)
Quarter: 2013Q4

REPORT INFORMATION
  Report Type: Spontaneous
  Country: US (occurrence: US)
  Receive Date: 20130717
  Receipt Date: 20131023
  Transmission Date: 20140711
  Serious: Yes (Hospitalization)
  Sender: FDA-Public Use
  Company Number: US-GLAXOSMITHKLINE-A0949734A

PATIENT
  Age: 37 Year
  Sex: Female
  Weight: 52.21 kg

DRUGS (9)
  1. BENLYSTA [Suspect]
     Indication: SYSTEMIC LUPUS ERYTHEMATOSUS
     Dosage: 10MGK EVERY TWO WEEKS
     Route: 042
     Dates: start: 20110921, end: 201112
  2. PREDNISONE [Concomitant]
     Dosage: 12.5MG PER DAY
  3. VALTREX [Concomitant]
     Dosage: 500MG PER DAY
  4. PLAQUENIL [Concomitant]
     Dosage: 200MG PER DAY
     Route: 048
  5. VITAMIN D [Concomitant]
  6. FOLIC ACID [Concomitant]
     Dosage: 4MG PER DAY
  7. K-DUR [Concomitant]
     Dosage: 60MEQ PER DAY
     Route: 048
  8. CALCIUM [Concomitant]
  9. TYLENOL [Concomitant]

REACTIONS (6)
  - Autoimmune hepatitis [Recovering/Resolving]
  - Chest discomfort [Recovering/Resolving]
  - Cold sweat [Recovering/Resolving]
  - Abdominal pain upper [Recovering/Resolving]
  - Nausea [Recovering/Resolving]
  - Hepatic enzyme increased [Recovering/Resolving]
